FAERS Safety Report 5504998-X (Version None)
Quarter: 2007Q4

REPORT INFORMATION
  Report Type: 
  Country: None (occurrence: None)
  Receive Date: 20071031
  Receipt Date: 20071031
  Transmission Date: 20080405
  Serious: Yes (Hospitalization, Other)
  Sender: FDA-Public Use
  Company Number: None

PATIENT
  Age: 39 Year
  Sex: Female
  Weight: 77.5651 kg

DRUGS (1)
  1. ATENOLOL [Suspect]
     Indication: AORTIC VALVE REPLACEMENT
     Dosage: TAKE 1/4 TAB  ONCE DAILY PO
     Route: 048
     Dates: start: 20061101, end: 20071030

REACTIONS (9)
  - ASTHENIA [None]
  - CONDUCTION DISORDER [None]
  - DIZZINESS [None]
  - FEELING ABNORMAL [None]
  - FEMALE ORGASMIC DISORDER [None]
  - HYPOAESTHESIA [None]
  - NERVOUS SYSTEM DISORDER [None]
  - SLEEP DISORDER [None]
  - THINKING ABNORMAL [None]
